FAERS Safety Report 8905991 (Version 1)
Quarter: 2012Q4

REPORT INFORMATION
  Report Type: Report from Study
  Country: DE (occurrence: DE)
  Receive Date: 20121109
  Receipt Date: 20121109
  Transmission Date: 20130627
  Serious: Yes (Hospitalization, Other)
  Sender: FDA-Public Use
  Company Number: DE-GLAXOSMITHKLINE-B0546360A

PATIENT
  Age: 69 Year
  Sex: Female
  Weight: 69.5 kg

DRUGS (3)
  1. LAPATINIB [Suspect]
     Indication: BREAST CANCER
     Dosage: 1500MG Per day
     Route: 048
     Dates: start: 20081010
  2. PACLITAXEL [Suspect]
     Indication: BREAST CANCER
     Dosage: 175MG Every 3 weeks
     Route: 042
     Dates: start: 20081010
  3. MYOCET [Suspect]
     Indication: BREAST CANCER
     Dosage: 110.76MG Every 3 weeks
     Route: 042
     Dates: start: 20081010

REACTIONS (9)
  - Diarrhoea [Recovered/Resolved]
  - Febrile neutropenia [Recovered/Resolved]
  - Neutrophil count [Recovered/Resolved]
  - Granulocyte count [Recovered/Resolved]
  - Diarrhoea [Recovered/Resolved]
  - Diarrhoea [Recovered/Resolved]
  - White blood cell count [Recovered/Resolved]
  - White blood cell count [Recovered/Resolved]
  - White blood cell count [Recovered/Resolved]
